FAERS Safety Report 16344810 (Version 1)
Quarter: 2019Q2

REPORT INFORMATION
  Report Type: Report from Study
  Country: US (occurrence: US)
  Receive Date: 20190522
  Receipt Date: 20190522
  Transmission Date: 20190711
  Serious: Yes (Hospitalization, Other)
  Sender: FDA-Public Use
  Company Number: US-ARIAD-2016US007183

PATIENT
  Sex: Female

DRUGS (2)
  1. PONATINIB [Suspect]
     Active Substance: PONATINIB
     Indication: CHRONIC MYELOID LEUKAEMIA
     Dosage: 15 MILLIGRAM, QD
     Route: 048
     Dates: start: 20160916
  2. PONATINIB [Suspect]
     Active Substance: PONATINIB
     Dosage: 15 MILLIGRAM, QD
     Route: 048

REACTIONS (7)
  - Respiratory syncytial virus infection [Unknown]
  - Graft versus host disease [Not Recovered/Not Resolved]
  - Osteonecrosis [Unknown]
  - Pancytopenia [Unknown]
  - Blood glucose increased [Unknown]
  - Allogenic stem cell transplantation [Unknown]
  - Pneumonia [Unknown]
